FAERS Safety Report 20092991 (Version 1)
Quarter: 2021Q4

REPORT INFORMATION
  Report Type: Report from Study
  Country: GB (occurrence: GB)
  Receive Date: 20211120
  Receipt Date: 20211120
  Transmission Date: 20220303
  Serious: Yes (Other)
  Sender: FDA-Public Use
  Company Number: GB-NOVARTISPH-NVSC2021GB264714

PATIENT
  Sex: Female

DRUGS (1)
  1. SIPONIMOD [Suspect]
     Active Substance: SIPONIMOD
     Indication: Secondary progressive multiple sclerosis
     Dosage: 2 MG, QD
     Route: 048
     Dates: start: 20210522

REACTIONS (4)
  - Multiple sclerosis [Unknown]
  - Tremor [Unknown]
  - Muscular weakness [Unknown]
  - Deafness [Unknown]

NARRATIVE: CASE EVENT DATE: 20210501
